FAERS Safety Report 16756650 (Version 2)
Quarter: 2019Q4

REPORT INFORMATION
  Report Type: Report from Study
  Country: JP (occurrence: JP)
  Receive Date: 20190829
  Receipt Date: 20191003
  Transmission Date: 20200122
  Serious: Yes (Other)
  Sender: FDA-Public Use
  Company Number: PHJP2019JP011087

PATIENT
  Age: 72 Year
  Sex: Female
  Weight: 47.9 kg

DRUGS (3)
  1. TALION [Concomitant]
     Indication: PSORIASIS
     Dosage: 20 MG, UNK
     Route: 048
     Dates: end: 20180618
  2. COSENTYX [Suspect]
     Active Substance: SECUKINUMAB
     Dosage: 300 MG, 4W
     Route: 058
     Dates: start: 20180730, end: 20181119
  3. COSENTYX [Suspect]
     Active Substance: SECUKINUMAB
     Indication: PSORIASIS
     Dosage: 300 MG, QW
     Route: 058
     Dates: start: 20180604, end: 20180702

REACTIONS (1)
  - Pneumonia bacterial [Recovered/Resolved]

NARRATIVE: CASE EVENT DATE: 20180730
